FAERS Safety Report 9344862 (Version 3)
Quarter: 2013Q3

REPORT INFORMATION
  Report Type: Spontaneous
  Country: JP (occurrence: JP)
  Receive Date: 20130612
  Receipt Date: 20130709
  Transmission Date: 20140515
  Serious: Yes (Hospitalization)
  Sender: FDA-Public Use
  Company Number: JP-GLAXOSMITHKLINE-B0897979A

PATIENT
  Age: 92 Year
  Sex: Male

DRUGS (4)
  1. VALTREX [Suspect]
     Indication: HERPES ZOSTER
     Dosage: 1000MG TWICE PER DAY
     Route: 048
     Dates: start: 20130521, end: 20130524
  2. SENNARIDE [Concomitant]
     Route: 048
  3. LOSARTAN POTASSIUM [Concomitant]
     Route: 048
  4. CALONAL [Concomitant]
     Dosage: 400MG PER DAY
     Route: 048

REACTIONS (6)
  - Depressed level of consciousness [Unknown]
  - Somnolence [Not Recovered/Not Resolved]
  - Glossoptosis [Unknown]
  - Aphagia [Unknown]
  - Pyrexia [Unknown]
  - Pneumonia [Unknown]
